FAERS Safety Report 9642486 (Version 4)
Quarter: 2014Q1

REPORT INFORMATION
  Report Type: Report from Study
  Country: CA (occurrence: CA)
  Receive Date: 20131024
  Receipt Date: 20140307
  Transmission Date: 20141002
  Serious: Yes (Other)
  Sender: FDA-Public Use
  Company Number: CA-ROCHE-1287064

PATIENT
  Age: 44 Year
  Sex: Female

DRUGS (7)
  1. PERJETA [Suspect]
     Indication: BREAST CANCER METASTATIC
     Dosage: INITIAL DOSE.
     Route: 042
     Dates: start: 20131002, end: 20140207
  2. PERJETA [Suspect]
     Indication: BREAST CANCER METASTATIC
  3. HERCEPTIN [Suspect]
     Indication: BREAST CANCER METASTATIC
     Route: 042
     Dates: start: 2008, end: 2012
  4. TAXOTERE [Suspect]
     Indication: BREAST CANCER METASTATIC
     Route: 042
     Dates: start: 20090210
  5. TYKERB [Concomitant]
     Indication: BREAST CANCER
     Route: 048
  6. LYRICA [Concomitant]
     Indication: PAIN
     Route: 048
  7. VITAMIN B6 [Concomitant]

REACTIONS (5)
  - Diarrhoea [Not Recovered/Not Resolved]
  - Pain [Not Recovered/Not Resolved]
  - Hypersensitivity [Unknown]
  - Disease progression [Unknown]
  - Drug ineffective [Unknown]
